FAERS Safety Report 20848523 (Version 2)
Quarter: 2022Q2

REPORT INFORMATION
  Report Type: Spontaneous
  Country: JP (occurrence: JP)
  Receive Date: 20220519
  Receipt Date: 20220623
  Transmission Date: 20220721
  Serious: Yes (Death)
  Sender: FDA-Public Use
  Company Number: JP-NBI-J202208740BIPI

PATIENT

DRUGS (1)
  1. OFEV [Suspect]
     Active Substance: NINTEDANIB
     Indication: Interstitial lung disease
     Route: 048
     Dates: start: 20220413, end: 202205

REACTIONS (1)
  - Atypical mycobacterial infection [Fatal]

NARRATIVE: CASE EVENT DATE: 20220501
